FAERS Safety Report 16211947 (Version 1)
Quarter: 2019Q2

REPORT INFORMATION
  Report Type: Spontaneous
  Country: US (occurrence: US)
  Receive Date: 20190418
  Receipt Date: 20190418
  Transmission Date: 20190711
  Serious: Yes (Other)
  Sender: FDA-Public Use
  Company Number: PHEH2019US016164

PATIENT

DRUGS (1)
  1. KYMRIAH [Suspect]
     Active Substance: TISAGENLECLEUCEL
     Indication: DIFFUSE LARGE B-CELL LYMPHOMA RECURRENT
     Dosage: UNK, ONCE/SINGLE
     Route: 042
     Dates: start: 20190309, end: 20190309

REACTIONS (3)
  - Blood immunoglobulin G increased [Unknown]
  - Positron emission tomogram abnormal [Unknown]
  - Therapy non-responder [Unknown]
